FAERS Safety Report 5660983-9 (Version None)
Quarter: 2008Q1

REPORT INFORMATION
  Report Type: 
  Country: None (occurrence: None)
  Receive Date: 20080311
  Receipt Date: 20080228
  Transmission Date: 20080703
  Serious: Yes (Other)
  Sender: FDA-Public Use
  Company Number: US-PFIZER INC-2008006411

PATIENT
  Sex: Female

DRUGS (1)
  1. CHANTIX [Suspect]

REACTIONS (2)
  - BLOOD PRESSURE [None]
  - MEMORY IMPAIRMENT [None]
